FAERS Safety Report 24221315 (Version 1)
Quarter: 2024Q3

REPORT INFORMATION
  Report Type: Spontaneous
  Country: CN (occurrence: CN)
  Receive Date: 20240819
  Receipt Date: 20240819
  Transmission Date: 20241017
  Serious: Yes (Hospitalization)
  Sender: NOVO NORDISK
  Company Number: CN-NOVOPROD-1267229

PATIENT
  Age: 64 Year
  Sex: Female

DRUGS (3)
  1. INSULIN ASPART [Suspect]
     Active Substance: INSULIN ASPART
     Indication: Diabetes mellitus
     Dosage: UNK
  2. RYZODEG 70/30 [Suspect]
     Active Substance: INSULIN ASPART\INSULIN DEGLUDEC
     Indication: Diabetes mellitus
     Dosage: 14 IU, QD (10 U IN THE MORNING AND 4 U IN THE EVENING)
  3. NOVOLIN R [Suspect]
     Active Substance: INSULIN HUMAN
     Indication: Diabetes mellitus
     Dosage: 6 IU, QD (AT NOON)

REACTIONS (1)
  - Hospitalisation [Unknown]

NARRATIVE: CASE EVENT DATE: 20240101
